FAERS Safety Report 25842898 (Version 1)
Quarter: 2025Q3

REPORT INFORMATION
  Report Type: Spontaneous
  Country: EU (occurrence: EU)
  Receive Date: 20250924
  Receipt Date: 20250924
  Transmission Date: 20251020
  Serious: Yes (Hospitalization, Other)
  Sender: MERCK SHARP & DOHME LLC
  Company Number: None

PATIENT
  Age: 71 Year
  Sex: Male
  Weight: 58.3 kg

DRUGS (10)
  1. KEYTRUDA [Suspect]
     Active Substance: PEMBROLIZUMAB
     Indication: Clear cell renal cell carcinoma
     Route: 042
     Dates: start: 20240220
  2. LENVATINIB [Suspect]
     Active Substance: LENVATINIB
     Indication: Clear cell renal cell carcinoma
     Dosage: DOSE DESCRIPTION : 1 CAPSULE OF 10 MG + 1 CAPSULE OF 4 MG PER DAY?DAILY DOSE : 14 MILLIGRAM
     Route: 048
     Dates: start: 20240220
  3. VISKEN QUINZE [Concomitant]
  4. ATORVASTATIN [Concomitant]
     Active Substance: ATORVASTATIN
  5. HYDROCHLOROTHIAZIDE\TELMISARTAN [Concomitant]
     Active Substance: HYDROCHLOROTHIAZIDE\TELMISARTAN
  6. LEVOTHYROX 150 micrograms, scored tablet [Concomitant]
  7. OMEPRAZOLE [Concomitant]
     Active Substance: OMEPRAZOLE
  8. IXPRIM 37.5 mg/325 mg, film-coated tablet [Concomitant]
  9. IMODIUM 2 mg, capsule [Concomitant]
  10. SMECTA [Concomitant]
     Active Substance: MONTMORILLONITE

REACTIONS (8)
  - Cholestasis [Not Recovered/Not Resolved]
  - Anorexia nervosa [Recovered/Resolved]
  - Immune-mediated hypothyroidism [Recovered/Resolved with Sequelae]
  - Asthenia [Recovered/Resolved]
  - Diarrhoea [Recovered/Resolved]
  - Rash maculo-papular [Recovered/Resolved]
  - Pruritus [Recovered/Resolved]
  - Decreased appetite [Recovered/Resolved]

NARRATIVE: CASE EVENT DATE: 20240501
